FAERS Safety Report 13359325 (Version 2)
Quarter: 2017Q2

REPORT INFORMATION
  Report Type: Spontaneous
  Country: US (occurrence: US)
  Receive Date: 20170322
  Receipt Date: 20170505
  Transmission Date: 20170830
  Serious: Yes (Other)
  Sender: FDA-Public Use
  Company Number: PHEH2017US007797

PATIENT
  Sex: Female
  Weight: 110 kg

DRUGS (3)
  1. RECLAST [Suspect]
     Active Substance: ZOLEDRONIC ACID
     Indication: OSTEOPOROSIS
     Dosage: 5 MG, UNK
     Route: 041
     Dates: start: 20160603, end: 20160603
  2. CALCIUM [Concomitant]
     Active Substance: CALCIUM
     Indication: PRODUCT USED FOR UNKNOWN INDICATION
     Dosage: UNK
     Route: 065
  3. VITAMIN D [Concomitant]
     Active Substance: CHOLECALCIFEROL
     Indication: PRODUCT USED FOR UNKNOWN INDICATION
     Dosage: UNK
     Route: 065

REACTIONS (14)
  - Malaise [Unknown]
  - Oedema [Recovered/Resolved]
  - Pain [Unknown]
  - Hypoaesthesia [Unknown]
  - Pyrexia [Unknown]
  - Musculoskeletal stiffness [Recovering/Resolving]
  - Toxicity to various agents [Unknown]
  - Feeling abnormal [Unknown]
  - Nausea [Unknown]
  - Angioedema [Unknown]
  - General physical health deterioration [Unknown]
  - Paraesthesia [Unknown]
  - Chills [Unknown]
  - Rash [Unknown]
